FAERS Safety Report 5744047-1 (Version None)
Quarter: 2008Q2

REPORT INFORMATION
  Report Type: 
  Country: None (occurrence: None)
  Receive Date: 20080516
  Receipt Date: 20080516
  Transmission Date: 20081010
  Serious: Yes (Other)
  Sender: FDA-Public Use
  Company Number: None

PATIENT
  Sex: Female
  Weight: 35 kg

DRUGS (2)
  1. PREDNISONE TAB [Suspect]
     Indication: GLOMERULONEPHRITIS
     Dosage: 10-40 MG DAILY PO YEARS
  2. PREDNISONE TAB [Suspect]
     Indication: SYSTEMIC LUPUS ERYTHEMATOSUS
     Dosage: 10-40 MG DAILY PO YEARS

REACTIONS (4)
  - BODY HEIGHT BELOW NORMAL [None]
  - BODY HEIGHT DECREASED [None]
  - EPIPHYSES DELAYED FUSION [None]
  - OSTEOPENIA [None]
